FAERS Safety Report 13511556 (Version 1)
Quarter: 2017Q2

REPORT INFORMATION
  Report Type: Spontaneous
  Country: US (occurrence: US)
  Receive Date: 20170503
  Receipt Date: 20170503
  Transmission Date: 20170830
  Serious: Yes (Disabling, Other)
  Sender: FDA-Public Use
  Company Number: None

PATIENT
  Age: 61 Year
  Sex: Female
  Weight: 81 kg

DRUGS (16)
  1. PREDNISONE. [Concomitant]
     Active Substance: PREDNISONE
  2. MONTELUKAST [Concomitant]
     Active Substance: MONTELUKAST SODIUM
  3. MULTIVITAMIN [Concomitant]
     Active Substance: VITAMINS
  4. ALLEGRA [Concomitant]
     Active Substance: FEXOFENADINE HYDROCHLORIDE
  5. BUSPIRONE HCL [Suspect]
     Active Substance: BUSPIRONE HYDROCHLORIDE
     Indication: ANXIETY
     Dosage: ?          QUANTITY:60 TABLET(S);?
     Route: 048
     Dates: start: 20170419, end: 20170430
  6. CYMBALTA [Concomitant]
     Active Substance: DULOXETINE HYDROCHLORIDE
  7. FUROSEMIDE. [Concomitant]
     Active Substance: FUROSEMIDE
  8. VITAMIN D3 [Concomitant]
     Active Substance: CHOLECALCIFEROL
  9. TRAMADOL. [Concomitant]
     Active Substance: TRAMADOL
  10. ZOLPIDEM [Concomitant]
     Active Substance: ZOLPIDEM\ZOLPIDEM TARTRATE
  11. VITAMIN C [Concomitant]
     Active Substance: ASCORBIC ACID
  12. KRILL OIL [Concomitant]
     Active Substance: DIETARY SUPPLEMENT
  13. CELEBREX [Concomitant]
     Active Substance: CELECOXIB
  14. LORAZEPAM. [Concomitant]
     Active Substance: LORAZEPAM
  15. GLUCOSAMINE CHRONDOITIN [Concomitant]
  16. CALCIUM [Concomitant]
     Active Substance: CALCIUM

REACTIONS (6)
  - Myalgia [None]
  - Pain [None]
  - Arthralgia [None]
  - Back pain [None]
  - Depression suicidal [None]
  - Lupus-like syndrome [None]

NARRATIVE: CASE EVENT DATE: 20170430
